FAERS Safety Report 23767666 (Version 1)
Quarter: 2024Q2

REPORT INFORMATION
  Report Type: Spontaneous
  Country: GB (occurrence: GB)
  Receive Date: 20240422
  Receipt Date: 20240422
  Transmission Date: 20240716
  Serious: Yes (Disabling, Other)
  Sender: FDA-Public Use
  Company Number: None

PATIENT
  Age: 21 Year
  Sex: Male

DRUGS (1)
  1. CIPROFLOXACIN HYDROCHLORIDE [Suspect]
     Active Substance: CIPROFLOXACIN HYDROCHLORIDE
     Indication: Prostatitis
     Dosage: 500 MG, BID
     Route: 048
     Dates: start: 20231120, end: 20231125

REACTIONS (8)
  - Medication error [Unknown]
  - Tendonitis [Recovering/Resolving]
  - Tinnitus [Not Recovered/Not Resolved]
  - Tendon pain [Recovering/Resolving]
  - Bone pain [Not Recovered/Not Resolved]
  - Gait inability [None]
  - Anxiety [None]
  - Depression [None]

NARRATIVE: CASE EVENT DATE: 20231123
